FAERS Safety Report 22010472 (Version 1)
Quarter: 2023Q1

REPORT INFORMATION
  Report Type: Other
  Country: TR (occurrence: None)
  Receive Date: 20230220
  Receipt Date: 20230220
  Transmission Date: 20230418
  Serious: Yes (Hospitalization)
  Sender: FDA-Public Use
  Company Number: TR-ROCHE-3286550

PATIENT
  Age: 61 Year
  Sex: Female

DRUGS (1)
  1. CAPECITABINE [Suspect]
     Active Substance: CAPECITABINE
     Indication: Gastric cancer
     Route: 048

REACTIONS (3)
  - Leukoencephalopathy [Unknown]
  - Transient ischaemic attack [Unknown]
  - Off label use [Unknown]
